FAERS Safety Report 7827896-5 (Version None)
Quarter: 2011Q4

REPORT INFORMATION
  Report Type: 
  Country: None (occurrence: None)
  Receive Date: 20111018
  Receipt Date: 20111006
  Transmission Date: 20120403
  Serious: Yes (Other)
  Sender: FDA-Public Use
  Company Number: ACO_27223_2011

PATIENT
  Age: 48 Year
  Sex: Female

DRUGS (2)
  1. TIZANIDINE HYDROCHLORIDE [Suspect]
     Indication: MYALGIA
     Dosage: 2MG, ONE TO THREE TIMES A DAY
     Dates: start: 20110909, end: 20110912
  2. IBUPROFEN [Concomitant]

REACTIONS (2)
  - ABDOMINAL PAIN UPPER [None]
  - STEVENS-JOHNSON SYNDROME [None]
